FAERS Safety Report 5046682-5 (Version None)
Quarter: 2006Q2

REPORT INFORMATION
  Report Type: 
  Country: None (occurrence: None)
  Receive Date: 20060601
  Receipt Date: 20060321
  Transmission Date: 20061013
  Serious: No
  Sender: FDA-Public Use
  Company Number: 2006PV010651

PATIENT
  Age: 47 Year
  Sex: Female

DRUGS (4)
  1. BYETTA [Suspect]
     Indication: DIABETES MELLITUS NON-INSULIN-DEPENDENT
     Dosage: 5 MCG; BID; SC
     Route: 058
     Dates: start: 20060311
  2. GLUCOVANCE [Concomitant]
  3. ACTOS [Concomitant]
  4. NEXIUM [Concomitant]

REACTIONS (3)
  - BREATH ODOUR [None]
  - ERUCTATION [None]
  - HOT FLUSH [None]
